FAERS Safety Report 17521964 (Version 1)
Quarter: 2020Q1

REPORT INFORMATION
  Report Type: Spontaneous
  Country: US (occurrence: US)
  Receive Date: 20200310
  Receipt Date: 20200310
  Transmission Date: 20200409
  Serious: No
  Sender: FDA-Public Use
  Company Number: US-FARMAPROD-201911-1855

PATIENT
  Sex: Male

DRUGS (15)
  1. ALLEGRA-D [Concomitant]
     Active Substance: FEXOFENADINE\PSEUDOEPHEDRINE
  2. LYRICA [Concomitant]
     Active Substance: PREGABALIN
  3. TERAZOSIN [Concomitant]
     Active Substance: TERAZOSIN HYDROCHLORIDE
  4. PREDNISOLONE W/BROMFENAC [Concomitant]
  5. NORVASC [Concomitant]
     Active Substance: AMLODIPINE BESYLATE
  6. COZAAR [Concomitant]
     Active Substance: LOSARTAN POTASSIUM
  7. COREG [Concomitant]
     Active Substance: CARVEDILOL
  8. OFLOXACIN. [Concomitant]
     Active Substance: OFLOXACIN
  9. LASIX [Concomitant]
     Active Substance: FUROSEMIDE
  10. OXERVATE [Suspect]
     Active Substance: CENEGERMIN-BKBJ
     Indication: ULCERATIVE KERATITIS
     Route: 047
  11. ATORVASTATIN CALCIUM. [Concomitant]
     Active Substance: ATORVASTATIN CALCIUM
  12. ASPIRIN. [Concomitant]
     Active Substance: ASPIRIN
  13. OXERVATE [Suspect]
     Active Substance: CENEGERMIN-BKBJ
     Indication: NEUROTROPHIC KERATOPATHY
  14. GLIPIZIDE. [Concomitant]
     Active Substance: GLIPIZIDE
  15. OXERVATE [Suspect]
     Active Substance: CENEGERMIN-BKBJ
     Indication: HYPOAESTHESIA EYE

REACTIONS (3)
  - Eye irritation [Unknown]
  - Ocular hyperaemia [Unknown]
  - Lacrimation increased [Unknown]
